APPROVED DRUG PRODUCT: DIMETHYL FUMARATE
Active Ingredient: DIMETHYL FUMARATE
Strength: 240MG
Dosage Form/Route: CAPSULE, DELAYED RELEASE;ORAL
Application: A210440 | Product #002 | TE Code: AB
Applicant: ALKEM LABORATORIES LTD
Approved: Sep 24, 2020 | RLD: No | RS: No | Type: RX